FAERS Safety Report 6061785-4 (Version None)
Quarter: 2009Q1

REPORT INFORMATION
  Report Type: 
  Country: None (occurrence: None)
  Receive Date: 20090202
  Receipt Date: 20090128
  Transmission Date: 20090719
  Serious: Yes (Congenital Anomaly)
  Sender: FDA-Public Use
  Company Number: DK-ABBOTT-09P-044-0500335-00

PATIENT
  Age: 1 Day

DRUGS (1)
  1. VALPROATE SODIUM [Suspect]
     Indication: DRUG EXPOSURE DURING PREGNANCY
     Route: 064

REACTIONS (8)
  - ATRIAL SEPTAL DEFECT [None]
  - CRYPTORCHISM [None]
  - DEFORMITY [None]
  - DEVELOPMENTAL DELAY [None]
  - DRUG EXPOSURE DURING PREGNANCY [None]
  - DYSMORPHISM [None]
  - FOETAL ANTICONVULSANT SYNDROME [None]
  - HIATUS HERNIA [None]
